FAERS Safety Report 21241097 (Version 1)
Quarter: 2022Q3

REPORT INFORMATION
  Report Type: Spontaneous
  Country: CA (occurrence: CA)
  Receive Date: 20220823
  Receipt Date: 20220823
  Transmission Date: 20221027
  Serious: Yes (Hospitalization)
  Sender: FDA-Public Use
  Company Number: CA-TEVA-2022-CA-2065791

PATIENT
  Age: 62 Year
  Sex: Female

DRUGS (15)
  1. ONDANSETRON [Suspect]
     Active Substance: ONDANSETRON
     Indication: Nausea
     Route: 065
  2. BUSULFEX [Suspect]
     Active Substance: BUSULFAN
     Indication: Bone marrow conditioning regimen
     Route: 065
  3. BUSULFEX [Suspect]
     Active Substance: BUSULFAN
     Indication: Autologous haematopoietic stem cell transplant
     Dosage: 193.8 MILLIGRAM DAILY; 3.0 DAYS
     Route: 042
  4. LENALIDOMIDE [Suspect]
     Active Substance: LENALIDOMIDE
     Indication: Bone marrow conditioning regimen
     Dosage: 10 MILLIGRAM DAILY; 315.0 DAYS
     Route: 048
  5. LENALIDOMIDE [Suspect]
     Active Substance: LENALIDOMIDE
     Indication: Autologous haematopoietic stem cell transplant
     Dosage: 10 MILLIGRAM DAILY; 936.0 DAYS
     Route: 048
  6. LENALIDOMIDE [Suspect]
     Active Substance: LENALIDOMIDE
     Dosage: 5 MILLIGRAM DAILY; 839.0 DAYS
     Route: 048
  7. MELPHALAN [Suspect]
     Active Substance: MELPHALAN
     Indication: Bone marrow conditioning regimen
     Dosage: 229.6 MILLIGRAM DAILY; 1.0 DAYS
     Route: 042
  8. MELPHALAN [Suspect]
     Active Substance: MELPHALAN
     Indication: Autologous haematopoietic stem cell transplant
  9. CIPROFLOXACIN [Concomitant]
     Active Substance: CIPROFLOXACIN
     Indication: Antibiotic therapy
     Dosage: 8.0 DAYS
     Route: 065
  10. FLAGYL [Concomitant]
     Active Substance: METRONIDAZOLE\METRONIDAZOLE HYDROCHLORIDE
     Indication: Antibiotic therapy
     Dosage: 8.0 DAYS
     Route: 065
  11. MORPHINE [Concomitant]
     Active Substance: MORPHINE
     Indication: Pain
     Dosage: 1.0 DAYS
     Route: 065
  12. TYLENOL [Concomitant]
     Active Substance: ACETAMINOPHEN
     Indication: Pain
     Route: 065
  13. TYLENOL [Concomitant]
     Active Substance: ACETAMINOPHEN
     Route: 065
  14. VALACYCLOVIR HYDROCHLORIDE [Concomitant]
     Active Substance: VALACYCLOVIR HYDROCHLORIDE
     Indication: Prophylaxis
     Dosage: 500 MILLIGRAM DAILY;
     Route: 065
  15. VALACYCLOVIR HYDROCHLORIDE [Concomitant]
     Active Substance: VALACYCLOVIR HYDROCHLORIDE
     Indication: Herpes zoster

REACTIONS (1)
  - Colitis [Recovered/Resolved]
